FAERS Safety Report 9174397 (Version 1)
Quarter: 2013Q1

REPORT INFORMATION
  Report Type: Spontaneous
  Country: DE (occurrence: DE)
  Receive Date: 20130320
  Receipt Date: 20130320
  Transmission Date: 20140127
  Serious: Yes (Hospitalization, Disabling, Other)
  Sender: FDA-Public Use
  Company Number: DE-JNJFOC-20130308543

PATIENT
  Sex: Male

DRUGS (4)
  1. XARELTO [Suspect]
     Indication: PRODUCT USED FOR UNKNOWN INDICATION
     Route: 048
  2. ACETYLSALICYLIC ACID [Interacting]
     Indication: PRODUCT USED FOR UNKNOWN INDICATION
     Route: 048
  3. PRAVASIN [Concomitant]
     Route: 048
  4. L-THYROXIN [Concomitant]
     Route: 048

REACTIONS (4)
  - Haemorrhage intracranial [Not Recovered/Not Resolved]
  - Cognitive disorder [Unknown]
  - Personality change [Unknown]
  - Drug interaction [Unknown]
